FAERS Safety Report 24880270 (Version 2)
Quarter: 2025Q1

REPORT INFORMATION
  Report Type: Spontaneous
  Country: US (occurrence: US)
  Receive Date: 20250123
  Receipt Date: 20250221
  Transmission Date: 20250409
  Serious: No
  Sender: PFIZER
  Company Number: US-PFIZER INC-202500008912

PATIENT
  Age: 13 Year
  Sex: Male
  Weight: 38.549 kg

DRUGS (1)
  1. GENOTROPIN [Suspect]
     Active Substance: SOMATROPIN
     Dosage: 2 MG, DAILY, EVERY NIGHT BEFORE BED

REACTIONS (1)
  - Device leakage [Unknown]
